FAERS Safety Report 17129542 (Version 5)
Quarter: 2020Q2

REPORT INFORMATION
  Report Type: Spontaneous
  Country: US (occurrence: US)
  Receive Date: 20191209
  Receipt Date: 20200626
  Transmission Date: 20200713
  Serious: No
  Sender: FDA-Public Use
  Company Number: US-PFIZER INC-2019334347

PATIENT
  Age: 90 Year
  Sex: Female
  Weight: 51.26 kg

DRUGS (2)
  1. XELJANZ [Suspect]
     Active Substance: TOFACITINIB CITRATE
     Dosage: 5 MG, 2X/DAY (TWICE DAILY)
     Route: 048
  2. XELJANZ [Suspect]
     Active Substance: TOFACITINIB CITRATE
     Indication: RHEUMATOID ARTHRITIS
     Dosage: 5 MG, 1X/DAY (ONCE DAILY)
     Route: 048

REACTIONS (6)
  - Malaise [Unknown]
  - Oropharyngeal pain [Unknown]
  - Infection [Unknown]
  - Ear pain [Unknown]
  - Dysphonia [Unknown]
  - Hypoacusis [Unknown]
